FAERS Safety Report 7914113-0 (Version None)
Quarter: 2011Q4

REPORT INFORMATION
  Report Type: 
  Country: None (occurrence: None)
  Receive Date: 20111115
  Receipt Date: 20111113
  Transmission Date: 20120403
  Serious: No
  Sender: FDA-Public Use
  Company Number: US-PFIZER INC-2011278129

PATIENT
  Sex: Male

DRUGS (1)
  1. CHANTIX [Suspect]
     Dosage: UNK

REACTIONS (6)
  - HOT FLUSH [None]
  - NAUSEA [None]
  - DYSGEUSIA [None]
  - VOMITING [None]
  - HYPERHIDROSIS [None]
  - RETCHING [None]
